FAERS Safety Report 11617306 (Version 7)
Quarter: 2018Q2

REPORT INFORMATION
  Report Type: Report from Study
  Country: US (occurrence: US)
  Receive Date: 20151009
  Receipt Date: 20180419
  Transmission Date: 20180711
  Serious: Yes (Hospitalization, Other)
  Sender: FDA-Public Use
  Company Number: US-JNJFOC-20151005589

PATIENT
  Age: 72 Year
  Sex: Female

DRUGS (34)
  1. IMBRUVICA [Suspect]
     Active Substance: IBRUTINIB
     Indication: CHRONIC LYMPHOCYTIC LEUKAEMIA
     Route: 048
     Dates: start: 20150109
  2. MAGNESIUM [Concomitant]
     Active Substance: MAGNESIUM
  3. COENZYME Q10 [Concomitant]
     Active Substance: UBIDECARENONE
  4. BYSTOLIC [Concomitant]
     Active Substance: NEBIVOLOL HYDROCHLORIDE
  5. RETINOL [Concomitant]
     Active Substance: RETINOL
  6. VITAMIN D3 [Concomitant]
     Active Substance: CHOLECALCIFEROL
  7. UBIQUINOL [Concomitant]
     Active Substance: UBIQUINOL
  8. POTASSIUM BICARBONATE. [Concomitant]
     Active Substance: POTASSIUM BICARBONATE
  9. TIZANIDINE. [Concomitant]
     Active Substance: TIZANIDINE
  10. IMBRUVICA [Suspect]
     Active Substance: IBRUTINIB
     Indication: NON-HODGKIN^S LYMPHOMA
     Route: 048
     Dates: start: 20150106
  11. TELMISARTAN. [Concomitant]
     Active Substance: TELMISARTAN
     Indication: BLOOD PRESSURE ABNORMAL
     Dates: start: 2014
  12. PROTONIX [Concomitant]
     Active Substance: PANTOPRAZOLE SODIUM
  13. ROBAXIN [Concomitant]
     Active Substance: METHOCARBAMOL
  14. LACTOBACILLUS ACIDOPHILUS [Concomitant]
     Active Substance: LACTOBACILLUS ACIDOPHILUS
  15. CARDIZEM [Suspect]
     Active Substance: DILTIAZEM HYDROCHLORIDE
     Indication: PRODUCT USED FOR UNKNOWN INDICATION
     Route: 065
     Dates: start: 20150904, end: 20150927
  16. COLACE [Concomitant]
     Active Substance: DOCUSATE SODIUM
  17. IRON [Concomitant]
     Active Substance: IRON
  18. ALGINIC ACID [Concomitant]
     Active Substance: ALGINIC ACID
  19. IMBRUVICA [Suspect]
     Active Substance: IBRUTINIB
     Indication: NON-HODGKIN^S LYMPHOMA
     Route: 048
     Dates: start: 20150109
  20. LYRICA [Concomitant]
     Active Substance: PREGABALIN
  21. HYDROCODONE BITARTRATE W/PARACETAMOL [Concomitant]
     Active Substance: ACETAMINOPHEN\HYDROCODONE BITARTRATE
  22. MULTIPLE VITAMINS [Concomitant]
     Active Substance: VITAMINS
  23. CAMELLIA SINENSIS [Concomitant]
     Active Substance: GREEN TEA LEAF
  24. HYDROCODONE BITARTRATE. [Concomitant]
     Active Substance: HYDROCODONE BITARTRATE
  25. TOPROL XL [Concomitant]
     Active Substance: METOPROLOL SUCCINATE
  26. LOSARTAN POTASSIUM. [Concomitant]
     Active Substance: LOSARTAN POTASSIUM
  27. PRALUENT [Concomitant]
     Active Substance: ALIROCUMAB
  28. BIFIDOBACTERIUM LACTIS [Concomitant]
     Active Substance: BIFIDOBACTERIUM ANIMALIS LACTIS
  29. POLICOSANOL [Concomitant]
  30. GAVISCON [Concomitant]
     Active Substance: ALUMINUM HYDROXIDE\MAGNESIUM CARBONATE
  31. IMBRUVICA [Suspect]
     Active Substance: IBRUTINIB
     Indication: CHRONIC LYMPHOCYTIC LEUKAEMIA
     Route: 048
     Dates: start: 20150106
  32. ATARAX [Suspect]
     Active Substance: HYDROXYZINE HYDROCHLORIDE
     Indication: PRURITUS GENERALISED
     Route: 065
  33. FISH OIL [Concomitant]
     Active Substance: FISH OIL
  34. VITAMIN D [Concomitant]
     Active Substance: CHOLECALCIFEROL
     Route: 065

REACTIONS (14)
  - Glaucoma [Unknown]
  - Cataract [Unknown]
  - Vomiting [Unknown]
  - Blood pressure increased [Unknown]
  - Weight increased [Unknown]
  - Hypoaesthesia [Recovered/Resolved]
  - Hyperhidrosis [Unknown]
  - Blood sodium decreased [Recovered/Resolved]
  - Asthenia [Recovered/Resolved]
  - Abdominal pain [Unknown]
  - Fatigue [Unknown]
  - Pruritus generalised [Unknown]
  - Back pain [Unknown]
  - Paraesthesia [Recovered/Resolved]

NARRATIVE: CASE EVENT DATE: 2015
